FAERS Safety Report 11360362 (Version 1)
Quarter: 2015Q3

REPORT INFORMATION
  Report Type: Report from Study
  Country: US (occurrence: US)
  Receive Date: 20150810
  Receipt Date: 20150810
  Transmission Date: 20151125
  Serious: No
  Sender: FDA-Public Use
  Company Number: PHEH2014US023190

PATIENT
  Sex: Female

DRUGS (4)
  1. EXTAVIA [Suspect]
     Active Substance: INTERFERON BETA-1B
     Dosage: 0.5 ML, QOD (WEEKS 3 TO 4; 0.125MG)
     Route: 058
  2. EXTAVIA [Suspect]
     Active Substance: INTERFERON BETA-1B
     Dosage: 1 ML, QOD (WEEKS 7 PLUS; 0.25MG)
     Route: 058
  3. EXTAVIA [Suspect]
     Active Substance: INTERFERON BETA-1B
     Dosage: 0.75 ML, QOD (WEEKS 5 TO 6; 0.1875MG)
     Route: 058
  4. EXTAVIA [Suspect]
     Active Substance: INTERFERON BETA-1B
     Indication: MULTIPLE SCLEROSIS
     Dosage: 0.25 ML, QOD (WEEKS 1 TO 2; 0.0625MG)
     Route: 058
     Dates: start: 201405

REACTIONS (1)
  - Injection site pain [Not Recovered/Not Resolved]
